FAERS Safety Report 4854454-7 (Version None)
Quarter: 2005Q4

REPORT INFORMATION
  Report Type: 
  Country: None (occurrence: None)
  Receive Date: 20051215
  Receipt Date: 20051201
  Transmission Date: 20060501
  Serious: Yes (Other)
  Sender: FDA-Public Use
  Company Number: PHEH2005US13167

PATIENT
  Sex: Female

DRUGS (3)
  1. LESCOL [Suspect]
     Indication: BLOOD CHOLESTEROL INCREASED
     Dosage: 20 MG,
     Dates: start: 20050411
  2. ALTACE [Concomitant]
     Dates: start: 20030101
  3. HYDROCHLORZIDE [Concomitant]
     Dates: start: 20030101, end: 20050601

REACTIONS (6)
  - LICHEN PLANUS [None]
  - PRURITUS [None]
  - RASH PUSTULAR [None]
  - SKIN DISCOLOURATION [None]
  - SKIN LESION [None]
  - SURGERY [None]
